FAERS Safety Report 9494642 (Version 1)
Quarter: 2013Q3

REPORT INFORMATION
  Report Type: Spontaneous
  Country: ZA (occurrence: ZA)
  Receive Date: 20130903
  Receipt Date: 20130903
  Transmission Date: 20140515
  Serious: Yes (Other)
  Sender: FDA-Public Use
  Company Number: ZA-ELI_LILLY_AND_COMPANY-ZA201308007827

PATIENT
  Age: 50 Year
  Sex: Female

DRUGS (3)
  1. CYMBALTA [Suspect]
     Indication: DEPRESSION
     Dosage: UNK, UNKNOWN
     Route: 065
     Dates: start: 20130718
  2. MOLIPAXIN [Concomitant]
     Indication: DEPRESSION
     Dosage: UNK, UNKNOWN
     Route: 065
     Dates: start: 20130718
  3. CILIFT [Concomitant]
     Indication: DEPRESSION
     Dosage: UNK, UNKNOWN
     Route: 065

REACTIONS (12)
  - Psychotic behaviour [Recovered/Resolved]
  - Seizure like phenomena [Recovered/Resolved]
  - Personality change [Recovered/Resolved]
  - Speech disorder [Recovered/Resolved]
  - Screaming [Recovered/Resolved]
  - Oculogyric crisis [Recovered/Resolved]
  - Tongue biting [Recovered/Resolved]
  - Incontinence [Recovered/Resolved]
  - Nightmare [Recovered/Resolved]
  - Sleep disorder [Recovered/Resolved]
  - Fall [Recovered/Resolved]
  - Tremor [Recovered/Resolved]
